FAERS Safety Report 10215233 (Version 1)
Quarter: 2014Q2

REPORT INFORMATION
  Report Type: Spontaneous
  Country: JP (occurrence: JP)
  Receive Date: 20140603
  Receipt Date: 20140603
  Transmission Date: 20141212
  Serious: Yes (Other)
  Sender: FDA-Public Use
  Company Number: PHHY2014JP066493

PATIENT
  Age: 59 Year
  Sex: Male

DRUGS (2)
  1. NEORAL [Suspect]
     Indication: INTERSTITIAL LUNG DISEASE
     Dosage: 400 MG, NIGHT DAILY
     Route: 048
  2. NEORAL [Suspect]
     Indication: OFF LABEL USE

REACTIONS (2)
  - Interstitial lung disease [Unknown]
  - Lung disorder [Unknown]
